FAERS Safety Report 15469375 (Version 1)
Quarter: 2018Q4

REPORT INFORMATION
  Report Type: Spontaneous
  Country: ES (occurrence: ES)
  Receive Date: 20181005
  Receipt Date: 20181005
  Transmission Date: 20190205
  Serious: Yes (Other)
  Sender: FDA-Public Use
  Company Number: ES-ALLERGAN-1847203US

PATIENT
  Age: 17 Year
  Sex: Female

DRUGS (1)
  1. LEVONORGESTREL UNK [Suspect]
     Active Substance: LEVONORGESTREL
     Indication: INFERTILITY
     Dosage: 52 MG, SINGLE
     Route: 015

REACTIONS (4)
  - Weight loss poor [Recovered/Resolved]
  - Off label use [Unknown]
  - Metabolic surgery [Recovered/Resolved]
  - Weight increased [Recovered/Resolved]
